FAERS Safety Report 7691232-8 (Version None)
Quarter: 2011Q3

REPORT INFORMATION
  Report Type: 
  Country: None (occurrence: None)
  Receive Date: 20110818
  Receipt Date: 20110809
  Transmission Date: 20111222
  Serious: Yes (Death)
  Sender: FDA-Public Use
  Company Number: US-BAXTER-2011BH025339

PATIENT
  Sex: Male

DRUGS (4)
  1. GAMMAGARD LIQUID [Suspect]
     Route: 065
     Dates: start: 20080901
  2. GAMMAGARD LIQUID [Suspect]
     Route: 065
     Dates: start: 20080901
  3. GAMMAGARD LIQUID [Suspect]
     Indication: TOXIC NEUROPATHY
     Route: 065
     Dates: start: 20100101, end: 20110101
  4. GAMMAGARD LIQUID [Suspect]
     Indication: OFF LABEL USE
     Route: 065
     Dates: start: 20100101, end: 20110101

REACTIONS (1)
  - DEATH [None]
